FAERS Safety Report 5325593-1 (Version None)
Quarter: 2007Q2

REPORT INFORMATION
  Report Type: 
  Country: None (occurrence: None)
  Receive Date: 20070515
  Receipt Date: 20070502
  Transmission Date: 20071010
  Serious: Yes (Other)
  Sender: FDA-Public Use
  Company Number: US-ELI_LILLY_AND_COMPANY-US200705000671

PATIENT
  Age: 59 Year
  Sex: Female

DRUGS (4)
  1. CYMBALTA [Suspect]
     Indication: DEPRESSION
     Dosage: 90 MG, DAILY (1/D)
     Route: 048
  2. CYMBALTA [Suspect]
     Dosage: 40 MG, DAILY (1/D)
     Route: 048
     Dates: start: 20060101
  3. CYMBALTA [Suspect]
     Dosage: 60 MG, DAILY (1/D)
     Route: 048
  4. DEMULEN /00144501/ [Concomitant]

REACTIONS (9)
  - ANGER [None]
  - ANXIETY [None]
  - BREAST CANCER [None]
  - CRYING [None]
  - DRUG INEFFECTIVE [None]
  - ENERGY INCREASED [None]
  - HOT FLUSH [None]
  - INSOMNIA [None]
  - STRESS [None]
